FAERS Safety Report 5397131-9 (Version None)
Quarter: 2007Q3

REPORT INFORMATION
  Report Type: 
  Country: None (occurrence: None)
  Receive Date: 20070723
  Receipt Date: 20070706
  Transmission Date: 20080115
  Serious: Yes (Hospitalization)
  Sender: FDA-Public Use
  Company Number: 2007BM000068

PATIENT
  Age: 7 Year
  Sex: Female
  Weight: 21.3 kg

DRUGS (14)
  1. NAGLAZYME [Suspect]
     Indication: MUCOPOLYSACCHARIDOSIS VI
     Dosage: 1 MG/KG; QW; IV
     Route: 042
     Dates: start: 20060420, end: 20070523
  2. NAGLAZYME [Suspect]
  3. METHYLPHENIDATE HCL [Concomitant]
  4. PREDNISONE [Concomitant]
  5. LANSOPRAZOLE [Concomitant]
  6. CALCIUM CARBONATE [Concomitant]
  7. DIPHENHYDRAMINE HCL [Concomitant]
  8. CLONIDINE HCL [Concomitant]
  9. HYDROCORTISONE SODIUM SUCCINATE [Concomitant]
  10. ACETAMINOPHEN [Concomitant]
  11. TETRACOSACTIDE [Concomitant]
  12. URSODIOL [Concomitant]
  13. ENALAPRIL MALEATE [Concomitant]
  14. NIFEDIPINE [Concomitant]

REACTIONS (10)
  - ACTIVATED PARTIAL THROMBOPLASTIN TIME PROLONGED [None]
  - CARPAL TUNNEL SYNDROME [None]
  - DISEASE RECURRENCE [None]
  - GASTROINTESTINAL HAEMORRHAGE [None]
  - HYPERTENSION [None]
  - INFUSION RELATED REACTION [None]
  - MASTOIDITIS [None]
  - RASH ERYTHEMATOUS [None]
  - TRIGGER FINGER [None]
  - URTICARIA [None]
